FAERS Safety Report 11636309 (Version 1)
Quarter: 2015Q4

REPORT INFORMATION
  Report Type: Spontaneous
  Country: US (occurrence: US)
  Receive Date: 20151016
  Receipt Date: 20151016
  Transmission Date: 20160304
  Serious: No
  Sender: FDA-Public Use
  Company Number: US-BAYER-2015-445647

PATIENT
  Age: 9 Year
  Sex: Female

DRUGS (1)
  1. CHILDREN CLARITIN ALLERGY [Suspect]
     Active Substance: LORATADINE
     Dosage: 4 DF, UNK
     Route: 048
     Dates: start: 20151013, end: 20151014

REACTIONS (1)
  - Product use issue [None]

NARRATIVE: CASE EVENT DATE: 20151014
